FAERS Safety Report 4559933-8 (Version None)
Quarter: 2005Q1

REPORT INFORMATION
  Report Type: 
  Country: None (occurrence: None)
  Receive Date: 20050103
  Receipt Date: 20040824
  Transmission Date: 20050727
  Serious: Yes (Other)
  Sender: FDA-Public Use
  Company Number: 2004UW18019

PATIENT
  Age: 58 Year
  Sex: Male
  Weight: 83.4619 kg

DRUGS (2)
  1. CRESTOR [Suspect]
     Indication: BLOOD CHOLESTEROL INCREASED
     Dosage: 10 MG QD PO
     Route: 048
     Dates: start: 20040601, end: 20040719
  2. VIAGRA [Concomitant]

REACTIONS (1)
  - POLYARTHRITIS [None]
